FAERS Safety Report 20740437 (Version 1)
Quarter: 2022Q2

REPORT INFORMATION
  Report Type: Spontaneous
  Country: CA (occurrence: CA)
  Receive Date: 20220422
  Receipt Date: 20220422
  Transmission Date: 20220721
  Serious: Yes (Hospitalization, Other)
  Sender: FDA-Public Use
  Company Number: CA-PFIZER INC-202200573071

PATIENT
  Age: 61 Year
  Sex: Female
  Weight: 68 kg

DRUGS (11)
  1. CELECOXIB [Suspect]
     Active Substance: CELECOXIB
     Route: 065
  2. CLOXACILLIN [Suspect]
     Active Substance: CLOXACILLIN
     Indication: Lymphadenitis
     Dosage: 1 MG, 3X/DAY
     Route: 065
  3. DURVALUMAB [Suspect]
     Active Substance: DURVALUMAB
     Indication: Squamous cell carcinoma
     Dosage: 1500 MG, MONTHLY
     Route: 042
  4. ACETAMINOPHEN [Concomitant]
     Active Substance: ACETAMINOPHEN
     Dosage: UNK
     Route: 065
  5. ATORVASTATIN CALCIUM [Concomitant]
     Active Substance: ATORVASTATIN CALCIUM
     Route: 065
  6. CALCIUM [Concomitant]
     Active Substance: CALCIUM
     Route: 065
  7. FUROSEMIDE [Concomitant]
     Active Substance: FUROSEMIDE
     Indication: Hyperkalaemia
     Dosage: 40 MG
     Route: 042
  8. LEVOTHYROXINE SODIUM [Concomitant]
     Active Substance: LEVOTHYROXINE SODIUM
     Route: 065
  9. PREDNISONE [Concomitant]
     Active Substance: PREDNISONE
     Dosage: 10 MG
     Route: 065
  10. PREGABALIN [Concomitant]
     Active Substance: PREGABALIN
     Route: 065
  11. VITAMIN D NOS [Concomitant]
     Active Substance: VITAMIN D NOS
     Route: 065

REACTIONS (3)
  - Lichenoid keratosis [Recovered/Resolved]
  - Pemphigoid [Recovered/Resolved]
  - Tubulointerstitial nephritis [Recovered/Resolved]
